FAERS Safety Report 14011942 (Version 1)
Quarter: 2017Q3

REPORT INFORMATION
  Report Type: Report from Study
  Country: None (occurrence: US)
  Receive Date: 20170926
  Receipt Date: 20170926
  Transmission Date: 20171128
  Serious: Yes (Other)
  Sender: FDA-Public Use
  Company Number: US-ABBVIE-17K-163-2064141-00

PATIENT
  Sex: Male

DRUGS (2)
  1. HUMIRA [Suspect]
     Active Substance: ADALIMUMAB
     Route: 058
  2. HUMIRA [Suspect]
     Active Substance: ADALIMUMAB
     Indication: COLITIS ULCERATIVE
     Route: 058

REACTIONS (8)
  - Peripheral swelling [Unknown]
  - Joint swelling [Unknown]
  - Coccidioidomycosis [Unknown]
  - Pain in extremity [Unknown]
  - Compartment syndrome [Unknown]
  - Hypersensitivity [Unknown]
  - Fatigue [Unknown]
  - Fungal infection [Unknown]

NARRATIVE: CASE EVENT DATE: 2017
